FAERS Safety Report 7558432-9 (Version None)
Quarter: 2011Q2

REPORT INFORMATION
  Report Type: 
  Country: None (occurrence: None)
  Receive Date: 20110620
  Receipt Date: 20110607
  Transmission Date: 20111010
  Serious: Yes (Other)
  Sender: FDA-Public Use
  Company Number: PHHY2011JP35540

PATIENT
  Age: 64 Year
  Sex: Female

DRUGS (4)
  1. NEORAL [Suspect]
     Indication: HISTIOCYTOSIS HAEMATOPHAGIC
     Dosage: 150 MG, DAILY
     Route: 048
     Dates: start: 20090730
  2. PREDNISOLONE [Suspect]
     Dosage: 10 MG, DAILY
     Route: 048
     Dates: start: 19870101
  3. PREDNISOLONE [Suspect]
     Dosage: 60 MG, DAILY
     Route: 048
     Dates: start: 20090727
  4. NEORAL [Suspect]
     Indication: SYSTEMIC LUPUS ERYTHEMATOSUS

REACTIONS (6)
  - HELICOBACTER INFECTION [None]
  - BACTERAEMIA [None]
  - PYREXIA [None]
  - CELLULITIS [None]
  - ERYTHEMA [None]
  - CONCOMITANT DISEASE AGGRAVATED [None]
